FAERS Safety Report 8560462-5 (Version None)
Quarter: 2012Q3

REPORT INFORMATION
  Report Type: 
  Country: None (occurrence: None)
  Receive Date: 20120802
  Receipt Date: 20120724
  Transmission Date: 20120928
  Serious: Yes (Other)
  Sender: FDA-Public Use
  Company Number: US-ASTRAZENECA-2007UW13547

PATIENT
  Age: 66 Year
  Sex: Female

DRUGS (6)
  1. FLAXSEED [Concomitant]
  2. ASPIRIN [Concomitant]
  3. CALCIUM CARBONATE [Concomitant]
     Dosage: AT NIGHT
  4. NEXIUM [Suspect]
     Indication: GASTROOESOPHAGEAL REFLUX DISEASE
     Route: 048
  5. CALCIUM [Concomitant]
  6. MULTI-VITAMINS [Concomitant]

REACTIONS (5)
  - NEOPLASM MALIGNANT [None]
  - EAR PAIN [None]
  - MALAISE [None]
  - DRUG DOSE OMISSION [None]
  - CHEST PAIN [None]
